FAERS Safety Report 6912749-7 (Version None)
Quarter: 2010Q3

REPORT INFORMATION
  Report Type: 
  Country: None (occurrence: None)
  Receive Date: 20100806
  Receipt Date: 20081104
  Transmission Date: 20110219
  Serious: No
  Sender: FDA-Public Use
  Company Number: US-PFIZER INC-2008093225

PATIENT
  Sex: Male

DRUGS (1)
  1. GLUCOTROL XL [Suspect]
     Indication: BLOOD GLUCOSE INCREASED

REACTIONS (2)
  - BLOOD GLUCOSE DECREASED [None]
  - BLOOD GLUCOSE INCREASED [None]
